FAERS Safety Report 4452258-0 (Version None)
Quarter: 2004Q3

REPORT INFORMATION
  Report Type: 
  Country: None (occurrence: None)
  Receive Date: 20040917
  Receipt Date: 20040810
  Transmission Date: 20050211
  Serious: Yes (Hospitalization)
  Sender: FDA-Public Use
  Company Number: JP-JNJFOC-20040105857

PATIENT
  Sex: Male
  Weight: 52 kg

DRUGS (26)
  1. REMICADE [Suspect]
     Route: 041
     Dates: start: 20030903
  2. REMICADE [Suspect]
     Route: 041
     Dates: start: 20030903
  3. REMICADE [Suspect]
     Route: 041
     Dates: start: 20030903
  4. REMICADE [Suspect]
     Route: 041
     Dates: start: 20030903
  5. REMICADE [Suspect]
     Route: 041
     Dates: start: 20030903
  6. REMICADE [Suspect]
     Indication: RHEUMATOID ARTHRITIS
     Route: 041
     Dates: start: 20030903
  7. RHEUMATREX [Suspect]
     Route: 049
     Dates: start: 20020612
  8. RHEUMATREX [Suspect]
     Indication: RHEUMATOID ARTHRITIS
     Route: 049
     Dates: start: 20020612
  9. PREDNISOLONE [Suspect]
     Route: 049
     Dates: start: 20030507
  10. PREDNISOLONE [Suspect]
     Route: 049
     Dates: start: 20030507
  11. PREDNISOLONE [Suspect]
     Route: 049
     Dates: start: 20030507
  12. PREDNISOLONE [Suspect]
     Indication: RHEUMATOID ARTHRITIS
     Route: 049
     Dates: start: 20030507
  13. BAKTAR [Concomitant]
     Route: 049
     Dates: start: 20020809
  14. BAKTAR [Concomitant]
     Route: 049
     Dates: start: 20020809
  15. MOBIC [Concomitant]
     Route: 049
     Dates: start: 20020809
  16. FOLIAMIN [Concomitant]
     Route: 049
  17. TAKEPRON [Concomitant]
     Route: 049
     Dates: start: 20020809
  18. CYTOTEC [Concomitant]
     Route: 049
     Dates: start: 20020809
  19. LIPITOR [Concomitant]
     Route: 049
     Dates: start: 20030611
  20. ISCOTIN [Concomitant]
     Route: 049
     Dates: start: 20020901
  21. LAXOBERON [Concomitant]
     Route: 049
     Dates: start: 20020809
  22. MAGNESIUM OXIDE [Concomitant]
     Route: 049
     Dates: start: 20020809
  23. PYRIDOXAL [Concomitant]
     Route: 049
     Dates: start: 20020801
  24. RIFAMPICIN [Concomitant]
  25. CHLORPHENIRAMINE MALEATE [Concomitant]
  26. KETOPROFEN [Concomitant]

REACTIONS (4)
  - DRUG INEFFECTIVE [None]
  - EXANTHEM [None]
  - PERICARDIAL EFFUSION [None]
  - PERICARDITIS [None]
